FAERS Safety Report 9344484 (Version 1)
Quarter: 2013Q2

REPORT INFORMATION
  Report Type: Spontaneous
  Country: US (occurrence: None)
  Receive Date: 20130611
  Receipt Date: 20130611
  Transmission Date: 20140414
  Serious: No
  Sender: FDA-Public Use
  Company Number: None

PATIENT
  Sex: Female

DRUGS (1)
  1. LEVOTHYROXINE [Suspect]
     Indication: PRIMARY HYPOTHYROIDISM
     Route: 048

REACTIONS (2)
  - Product substitution issue [None]
  - Blood thyroid stimulating hormone abnormal [None]
